FAERS Safety Report 11758919 (Version 1)
Quarter: 2015Q4

REPORT INFORMATION
  Report Type: Spontaneous
  Country: CA (occurrence: CA)
  Receive Date: 20151120
  Receipt Date: 20151120
  Transmission Date: 20160304
  Serious: Yes (Other)
  Sender: FDA-Public Use
  Company Number: CA-BD RX INC-2015BDR00632

PATIENT
  Age: 62 Year
  Sex: Male

DRUGS (4)
  1. BENZODIAZEPINES [Concomitant]
     Active Substance: BENZODIAZEPINE
  2. QUETIAPINE [Suspect]
     Active Substance: QUETIAPINE
     Indication: AGITATION
     Dosage: 50 MG, EVERY 6 HOURS
     Route: 065
  3. METOCLOPRAMIDE. [Suspect]
     Active Substance: METOCLOPRAMIDE
     Indication: GASTRIC DISORDER
     Dosage: 50 MG, EVERY 6 HOURS
     Route: 065
  4. PRAMIPEXOLE. [Concomitant]
     Active Substance: PRAMIPEXOLE
     Indication: RESTLESS LEGS SYNDROME
     Dosage: 0.5 MG, NIGHTLY

REACTIONS (2)
  - Drug interaction [Recovered/Resolved]
  - Dystonia [Recovered/Resolved]
